FAERS Safety Report 22317497 (Version 4)
Quarter: 2023Q2

REPORT INFORMATION
  Report Type: Report from Study
  Country: CA (occurrence: CA)
  Receive Date: 20230515
  Receipt Date: 20230613
  Transmission Date: 20230721
  Serious: Yes (Other)
  Sender: FDA-Public Use
  Company Number: CA-DECIPHERA PHARMACEUTICALS LLC-2023CA000095

PATIENT
  Sex: Male

DRUGS (10)
  1. QINLOCK [Suspect]
     Active Substance: RIPRETINIB
     Indication: Gastrointestinal stromal tumour
     Dosage: 150 MILLIGRAM, QD
     Route: 048
     Dates: start: 20230123, end: 20230126
  2. QINLOCK [Suspect]
     Active Substance: RIPRETINIB
     Dosage: 150 UNK
     Route: 048
  3. QINLOCK [Suspect]
     Active Substance: RIPRETINIB
     Dosage: 100 MILLIGRAM, QD  (2 TABLETS)
     Route: 048
  4. QINLOCK [Suspect]
     Active Substance: RIPRETINIB
     Dosage: 50MILLIGRAM, QD  (1 TABLET)
     Route: 048
  5. QINLOCK [Suspect]
     Active Substance: RIPRETINIB
     Dosage: 100 MILLIGRAM, QD  (2 TABLETS)
     Route: 048
     Dates: start: 20230414
  6. VALPROIC ACID [Concomitant]
     Active Substance: VALPROIC ACID
  7. PANTOPRAZOLE SODIUM [Concomitant]
     Active Substance: PANTOPRAZOLE SODIUM
  8. ATENOLOL [Concomitant]
     Active Substance: ATENOLOL
  9. XARELTO [Concomitant]
     Active Substance: RIVAROXABAN
  10. MORNIFLUMATE [Concomitant]
     Active Substance: MORNIFLUMATE

REACTIONS (9)
  - Gait disturbance [Recovering/Resolving]
  - Oedema peripheral [Recovering/Resolving]
  - Fall [Unknown]
  - Mobility decreased [Not Recovered/Not Resolved]
  - Balance disorder [Not Recovered/Not Resolved]
  - Muscular weakness [Recovered/Resolved]
  - Myalgia [Not Recovered/Not Resolved]
  - Constipation [Recovered/Resolved]
  - Underdose [Unknown]

NARRATIVE: CASE EVENT DATE: 20230124
